FAERS Safety Report 8963646 (Version 1)
Quarter: 2012Q4

REPORT INFORMATION
  Report Type: 
  Country: US (occurrence: US)
  Receive Date: 20121214
  Receipt Date: 20121214
  Transmission Date: 20130627
  Serious: No
  Sender: FDA-Public Use
  Company Number: US-TEVA-375827USA

PATIENT
  Age: 31 Year
  Sex: Female
  Weight: 44.49 kg

DRUGS (1)
  1. PLAN B ONE-STEP [Suspect]
     Indication: POST COITAL CONTRACEPTION
     Dosage: 1.5 Milligram Daily;
     Route: 048
     Dates: start: 20121128, end: 20121128

REACTIONS (4)
  - Vaginal discharge [Not Recovered/Not Resolved]
  - Menstruation irregular [Not Recovered/Not Resolved]
  - Breast tenderness [Not Recovered/Not Resolved]
  - Off label use [Unknown]
